FAERS Safety Report 17156144 (Version 2)
Quarter: 2020Q1

REPORT INFORMATION
  Report Type: Spontaneous
  Country: CA (occurrence: CA)
  Receive Date: 20191216
  Receipt Date: 20200119
  Transmission Date: 20200409
  Serious: Yes (Other)
  Sender: FDA-Public Use
  Company Number: CA-BEH-2019110523

PATIENT
  Age: 40 Year
  Sex: Female

DRUGS (3)
  1. CLINDAMYCIN. [Concomitant]
     Active Substance: CLINDAMYCIN
     Indication: TOXIC SHOCK SYNDROME STREPTOCOCCAL
     Route: 042
  2. CEFTRIAXONE. [Concomitant]
     Active Substance: CEFTRIAXONE
     Indication: TOXIC SHOCK SYNDROME STREPTOCOCCAL
     Route: 042
  3. HUMAN IMMUNOGLOBULIN (INN) [Suspect]
     Active Substance: HUMAN IMMUNOGLOBULIN G
     Indication: TOXIC SHOCK SYNDROME STREPTOCOCCAL
     Route: 042

REACTIONS (3)
  - Transfusion-related acute lung injury [Recovered/Resolved]
  - Product use in unapproved indication [Unknown]
  - No adverse event [Unknown]
